FAERS Safety Report 16427272 (Version 1)
Quarter: 2019Q2

REPORT INFORMATION
  Report Type: Spontaneous
  Country: CA (occurrence: CA)
  Receive Date: 20190613
  Receipt Date: 20190613
  Transmission Date: 20190711
  Serious: Yes (Hospitalization, Other)
  Sender: FDA-Public Use
  Company Number: CA-009507513-1906CAN004023

PATIENT
  Age: 91 Year
  Sex: Male
  Weight: 65 kg

DRUGS (11)
  1. AVODART [Concomitant]
     Active Substance: DUTASTERIDE
  2. LIPITOR [Concomitant]
     Active Substance: ATORVASTATIN CALCIUM
  3. SYNTHROID [Concomitant]
     Active Substance: LEVOTHYROXINE SODIUM
  4. CALCIUM (UNSPECIFIED) [Concomitant]
     Active Substance: CALCIUM
  5. ASAPHEN [Concomitant]
     Active Substance: ASPIRIN
  6. PANTOLOC [Concomitant]
     Active Substance: PANTOPRAZOLE SODIUM
  7. PROLIA [Concomitant]
     Active Substance: DENOSUMAB
     Dosage: SOLUTION
     Route: 058
  8. VITAMIN D (UNSPECIFIED) [Concomitant]
     Active Substance: VITAMIN D NOS
  9. ONCOTICE [Suspect]
     Active Substance: BACILLUS CALMETTE-GUERIN SUBSTRAIN TICE LIVE ANTIGEN
     Indication: BLADDER CANCER
     Dosage: 50 MILLIGRAM, 1 EVERY 2 WEEKS
     Route: 043
  10. FLOMAX [Concomitant]
     Active Substance: TAMSULOSIN HYDROCHLORIDE
  11. COVERSYL (PERINDOPRIL ARGININE) [Concomitant]
     Active Substance: PERINDOPRIL ARGININE

REACTIONS (8)
  - Hypophagia [Recovering/Resolving]
  - Metabolic acidosis [Recovering/Resolving]
  - Anaemia [Recovering/Resolving]
  - Acute kidney injury [Recovering/Resolving]
  - Hyperkalaemia [Recovering/Resolving]
  - Nausea [Recovering/Resolving]
  - Renal tubular necrosis [Recovering/Resolving]
  - Vomiting [Recovering/Resolving]
